FAERS Safety Report 8170124-4 (Version None)
Quarter: 2012Q1

REPORT INFORMATION
  Report Type: 
  Country: None (occurrence: None)
  Receive Date: 20120228
  Receipt Date: 20120217
  Transmission Date: 20120608
  Serious: Yes (Other)
  Sender: FDA-Public Use
  Company Number: PHFR2012GB000809

PATIENT
  Sex: Male

DRUGS (4)
  1. ZOMETA [Suspect]
     Dosage: 4 MG, QMO
     Route: 042
     Dates: start: 20111206
  2. ACYCLOVIR [Concomitant]
     Indication: PROPHYLAXIS
     Dosage: 600 MG, DAILY
     Route: 048
     Dates: start: 20110501
  3. ZOMETA [Suspect]
     Indication: MULTIPLE MYELOMA
     Dosage: 4 MG, QMO
     Route: 042
     Dates: start: 20060601
  4. PAROXETINE [Concomitant]
     Indication: DEPRESSION
     Dosage: 20 MG, DAILY
     Dates: start: 20070101

REACTIONS (4)
  - OSTEONECROSIS OF JAW [None]
  - TOOTH DISORDER [None]
  - PAIN [None]
  - EXPOSED BONE IN JAW [None]
